FAERS Safety Report 19776538 (Version 3)
Quarter: 2021Q3

REPORT INFORMATION
  Report Type: Spontaneous
  Country: JP (occurrence: JP)
  Receive Date: 20210901
  Receipt Date: 20210922
  Transmission Date: 20211014
  Serious: Yes (Life-Threatening)
  Sender: FDA-Public Use
  Company Number: JP-MYOVANT SCIENCES GMBH-2021MYSCI0800447

PATIENT
  Age: 48 Year
  Sex: Female

DRUGS (4)
  1. RELUMINA [Suspect]
     Active Substance: RELUGOLIX
     Indication: ANAEMIA
  2. FERROMIA [Concomitant]
     Active Substance: SODIUM FERROUS CITRATE
     Indication: PRODUCT USED FOR UNKNOWN INDICATION
     Dosage: 100 MILLIGRAM, QD
     Route: 065
  3. RELUMINA [Suspect]
     Active Substance: RELUGOLIX
     Indication: UTERINE LEIOMYOMA
     Dosage: 40 MILLIGRAM, QD
     Route: 048
     Dates: start: 202107
  4. RELUMINA [Suspect]
     Active Substance: RELUGOLIX
     Indication: HEAVY MENSTRUAL BLEEDING

REACTIONS (1)
  - Seizure [Recovering/Resolving]

NARRATIVE: CASE EVENT DATE: 202107
